FAERS Safety Report 17961186 (Version 1)
Quarter: 2020Q2

REPORT INFORMATION
  Report Type: Spontaneous
  Country: US (occurrence: US)
  Receive Date: 20200629
  Receipt Date: 20200629
  Transmission Date: 20200714
  Serious: No
  Sender: FDA-Public Use
  Company Number: None

PATIENT
  Age: 77 Year
  Sex: Male

DRUGS (2)
  1. PERFLUTREN  (PERFLUTREN LIPID MICROSPHERE INJ, 2ML) [Suspect]
     Active Substance: PERFLUTREN
     Indication: CARDIOVASCULAR DISORDER
     Dates: start: 20200327, end: 20200327
  2. PERFLUTREN  (PERFLUTREN LIPID MICROSPHERE INJ, 2ML) [Suspect]
     Active Substance: PERFLUTREN
     Indication: SURGERY
     Dates: start: 20200327, end: 20200327

REACTIONS (4)
  - Respiratory depression [None]
  - Cough [None]
  - Dyspnoea [None]
  - Wheezing [None]

NARRATIVE: CASE EVENT DATE: 20200327
